FAERS Safety Report 21404090 (Version 1)
Quarter: 2022Q4

REPORT INFORMATION
  Report Type: Spontaneous
  Country: US (occurrence: US)
  Receive Date: 20221003
  Receipt Date: 20221003
  Transmission Date: 20230113
  Serious: No
  Sender: FDA-Public Use
  Company Number: US-TEVA-2022-US-2075594

PATIENT
  Age: 32 Year
  Sex: Female
  Weight: 99.3 kg

DRUGS (2)
  1. PHENTERMINE [Suspect]
     Active Substance: PHENTERMINE
     Indication: Product used for unknown indication
     Route: 065
     Dates: start: 20220804
  2. CAPLYTA [Suspect]
     Active Substance: LUMATEPERONE
     Indication: Mood altered
     Route: 048
     Dates: start: 20220811, end: 20220811

REACTIONS (4)
  - Temperature regulation disorder [Recovered/Resolved]
  - Skin burning sensation [Unknown]
  - Rash [Recovered/Resolved]
  - Off label use [Unknown]

NARRATIVE: CASE EVENT DATE: 20220811
